FAERS Safety Report 9790220 (Version 1)
Quarter: 2013Q4

REPORT INFORMATION
  Report Type: Spontaneous
  Country: IT (occurrence: IT)
  Receive Date: 20131231
  Receipt Date: 20131231
  Transmission Date: 20140711
  Serious: Yes (Hospitalization)
  Sender: FDA-Public Use
  Company Number: IT-UCBSA-106813

PATIENT
  Age: 6 Year
  Sex: Female

DRUGS (1)
  1. XYZAL [Suspect]
     Dosage: 5 MG/ML ORAL DROPS, 20 ML GLASS BOTTLE; 32 DROPS
     Route: 048
     Dates: start: 20130502, end: 20130502

REACTIONS (2)
  - Medication error [Recovered/Resolved]
  - Overdose [Recovered/Resolved]
